FAERS Safety Report 23758176 (Version 2)
Quarter: 2024Q2

REPORT INFORMATION
  Report Type: Spontaneous
  Country: US (occurrence: None)
  Receive Date: 20240418
  Receipt Date: 20240509
  Transmission Date: 20240716
  Serious: No
  Sender: FDA-Public Use
  Company Number: 2024A092934

PATIENT
  Age: 59 Year
  Sex: Female

DRUGS (1)
  1. BYDUREON BCISE [Suspect]
     Active Substance: EXENATIDE
     Dosage: 2.0MG UNKNOWN

REACTIONS (7)
  - Injection site discomfort [Unknown]
  - Fatigue [Unknown]
  - Injection site indentation [Unknown]
  - Wrong technique in device usage process [Unknown]
  - Product use issue [Unknown]
  - Incorrect dose administered [Unknown]
  - Accident [Unknown]

NARRATIVE: CASE EVENT DATE: 20240412
